FAERS Safety Report 8367488-5 (Version None)
Quarter: 2012Q2

REPORT INFORMATION
  Report Type: 
  Country: None (occurrence: None)
  Receive Date: 20120517
  Receipt Date: 20120309
  Transmission Date: 20120825
  Serious: No
  Sender: FDA-Public Use
  Company Number: US-GLAXOSMITHKLINE-A0969865A

PATIENT
  Age: 55 Year
  Sex: Male

DRUGS (6)
  1. OXYCONTIN [Concomitant]
  2. VOTRIENT [Suspect]
     Indication: MALIGNANT SOFT TISSUE NEOPLASM
     Dosage: 800MG PER DAY
     Route: 048
     Dates: start: 20111201
  3. SENOKOT [Concomitant]
  4. OXYCODONE HCL [Concomitant]
  5. AMBIEN [Concomitant]
  6. ZOFRAN [Concomitant]

REACTIONS (2)
  - OFF LABEL USE [None]
  - TREATMENT FAILURE [None]
